FAERS Safety Report 16115288 (Version 1)
Quarter: 2019Q1

REPORT INFORMATION
  Report Type: Spontaneous
  Country: US (occurrence: US)
  Receive Date: 20190325
  Receipt Date: 20190325
  Transmission Date: 20190418
  Serious: No
  Sender: FDA-Public Use
  Company Number: US-ELI_LILLY_AND_COMPANY-US201903006771

PATIENT
  Sex: Male

DRUGS (3)
  1. FROVA [Concomitant]
     Active Substance: FROVATRIPTAN SUCCINATE
     Indication: MIGRAINE
  2. TOPIRAMATE. [Suspect]
     Active Substance: TOPIRAMATE
     Indication: PRODUCT USED FOR UNKNOWN INDICATION
     Dosage: UNK, UNKNOWN
     Route: 065
  3. EMGALITY [Suspect]
     Active Substance: GALCANEZUMAB-GNLM
     Indication: MIGRAINE
     Dosage: UNK, UNKNOWN
     Route: 065
     Dates: start: 20190224

REACTIONS (4)
  - Memory impairment [Unknown]
  - Tinnitus [Recovering/Resolving]
  - Photosensitivity reaction [Recovering/Resolving]
  - Hyperacusis [Recovering/Resolving]
